FAERS Safety Report 9878822 (Version 2)
Quarter: 2014Q2

REPORT INFORMATION
  Report Type: Spontaneous
  Country: FR (occurrence: FR)
  Receive Date: 20140206
  Receipt Date: 20140605
  Transmission Date: 20141212
  Serious: Yes (Other)
  Sender: FDA-Public Use
  Company Number: FR-GLAXOSMITHKLINE-B0966450A

PATIENT
  Age: 72 Year
  Sex: Male

DRUGS (6)
  1. SORIATANE [Suspect]
     Indication: PSORIASIS
     Route: 048
     Dates: start: 201210, end: 20140417
  2. NEBIVOLOL [Concomitant]
  3. CLOPIDOGREL [Concomitant]
  4. CRESTOR [Concomitant]
  5. PERINDOPRIL [Concomitant]
  6. PERMIXON [Concomitant]

REACTIONS (2)
  - Skin fissures [Not Recovered/Not Resolved]
  - Gastric mucosal lesion [Not Recovered/Not Resolved]
